FAERS Safety Report 16109869 (Version 8)
Quarter: 2025Q3

REPORT INFORMATION
  Report Type: Report from Study
  Country: EU (occurrence: EU)
  Receive Date: 20190325
  Receipt Date: 20250818
  Transmission Date: 20251020
  Serious: Yes (Death, Other)
  Sender: CELLTRION
  Company Number: EU-CELLTRION INC.-2019DE019581

PATIENT

DRUGS (18)
  1. RITUXIMAB [Suspect]
     Active Substance: RITUXIMAB
     Indication: Chronic lymphocytic leukaemia
     Route: 065
  2. RITUXIMAB [Suspect]
     Active Substance: RITUXIMAB
  3. FLUDARABINE PHOSPHATE [Suspect]
     Active Substance: FLUDARABINE PHOSPHATE
     Indication: Chronic lymphocytic leukaemia
     Route: 065
  4. BENDAMUSTINE [Suspect]
     Active Substance: BENDAMUSTINE
     Indication: Chronic lymphocytic leukaemia
     Route: 042
  5. BENDAMUSTINE [Suspect]
     Active Substance: BENDAMUSTINE
     Route: 065
  6. DEXAMETHASONE [Suspect]
     Active Substance: DEXAMETHASONE
     Indication: Chronic lymphocytic leukaemia
     Route: 065
  7. DEXAMETHASONE [Suspect]
     Active Substance: DEXAMETHASONE
  8. DEXAMETHASONE [Suspect]
     Active Substance: DEXAMETHASONE
  9. CYTARABINE [Suspect]
     Active Substance: CYTARABINE
     Indication: Chronic lymphocytic leukaemia
     Route: 065
  10. CYTARABINE [Suspect]
     Active Substance: CYTARABINE
  11. CYTARABINE [Suspect]
     Active Substance: CYTARABINE
  12. CYTARABINE [Suspect]
     Active Substance: CYTARABINE
  13. CISPLATIN [Suspect]
     Active Substance: CISPLATIN
     Indication: Chronic lymphocytic leukaemia
     Route: 065
  14. CISPLATIN [Suspect]
     Active Substance: CISPLATIN
  15. CISPLATIN [Suspect]
     Active Substance: CISPLATIN
  16. CISPLATIN [Suspect]
     Active Substance: CISPLATIN
  17. CISPLATIN [Suspect]
     Active Substance: CISPLATIN
  18. FLUDARABINE [Suspect]
     Active Substance: FLUDARABINE PHOSPHATE
     Indication: Chronic lymphocytic leukaemia

REACTIONS (8)
  - Pneumonia bacterial [Fatal]
  - Neutropenic sepsis [Fatal]
  - Gastroenteritis sapovirus [Fatal]
  - Condition aggravated [Fatal]
  - Diarrhoea [Fatal]
  - Diarrhoea [Fatal]
  - Viral infection [Fatal]
  - Condition aggravated [Not Recovered/Not Resolved]
